FAERS Safety Report 18968776 (Version 4)
Quarter: 2021Q3

REPORT INFORMATION
  Report Type: Spontaneous
  Country: PL (occurrence: PL)
  Receive Date: 20210304
  Receipt Date: 20210921
  Transmission Date: 20211014
  Serious: Yes (Hospitalization, Disabling, Other)
  Sender: FDA-Public Use
  Company Number: PL-MYLANLABS-2021M1012305

PATIENT
  Age: 28 Year
  Sex: Male

DRUGS (13)
  1. OLANZAPINE. [Suspect]
     Active Substance: OLANZAPINE
     Indication: SCHIZOPHRENIA
     Dosage: 10 MILLIGRAM, QD
     Route: 065
     Dates: start: 2008, end: 201612
  2. OLANZAPINE. [Suspect]
     Active Substance: OLANZAPINE
     Indication: MENTAL IMPAIRMENT
     Dosage: 10 MILLIGRAM, QD
     Route: 065
     Dates: start: 201703
  3. ARIPIPRAZOLE. [Suspect]
     Active Substance: ARIPIPRAZOLE
     Indication: SCHIZOPHRENIA
     Dosage: UNK
     Route: 065
  4. ARIPIPRAZOLE. [Suspect]
     Active Substance: ARIPIPRAZOLE
     Indication: PITUITARY TUMOUR BENIGN
     Dosage: 30 MILLIGRAM, QD
     Route: 065
     Dates: start: 20170420, end: 20170608
  5. ZIPRASIDONE. [Suspect]
     Active Substance: ZIPRASIDONE
     Indication: SCHIZOPHRENIA
     Dosage: 160 MILLIGRAM, QD
     Route: 065
     Dates: start: 20170515, end: 20170529
  6. QUINAGOLIDE [Suspect]
     Active Substance: QUINAGOLIDE
     Indication: PRODUCT USED FOR UNKNOWN INDICATION
     Dosage: 75 MILLIGRAM, QD
     Route: 065
  7. QUINAGOLIDE [Suspect]
     Active Substance: QUINAGOLIDE
     Dosage: 50 MILLIGRAM, EVERY OTHER DAY
     Route: 065
  8. OLANZAPINE. [Suspect]
     Active Substance: OLANZAPINE
     Dosage: 10 MILLIGRAM, QD
     Route: 065
     Dates: start: 20170327, end: 20170423
  9. OLANZAPINE. [Suspect]
     Active Substance: OLANZAPINE
     Dosage: 10 MILLIGRAM, QD
     Route: 065
     Dates: start: 2008, end: 201612
  10. OLANZAPINE. [Suspect]
     Active Substance: OLANZAPINE
     Dosage: UNK
     Route: 065
     Dates: start: 2008, end: 201612
  11. MIRTAZAPINE. [Suspect]
     Active Substance: MIRTAZAPINE
     Indication: SCHIZOPHRENIA
     Dosage: 15 MILLIGRAM, QD (15 MG, PER DAY)
     Route: 065
     Dates: start: 20170602, end: 20170729
  12. OLANZAPINE. [Suspect]
     Active Substance: OLANZAPINE
     Dosage: 10 MILLIGRAM, QD
     Route: 065
     Dates: start: 20170327, end: 20170427
  13. CLOZAPINE. [Concomitant]
     Active Substance: CLOZAPINE
     Dosage: 50 MILLIGRAM, QD
     Dates: start: 201806

REACTIONS (12)
  - Blood prolactin increased [Recovering/Resolving]
  - Mental impairment [Unknown]
  - Initial insomnia [Unknown]
  - Product use in unapproved indication [Unknown]
  - Drug ineffective [Unknown]
  - Pituitary tumour benign [Not Recovered/Not Resolved]
  - Tension [Unknown]
  - Therapeutic product effect incomplete [Unknown]
  - Mental disorder [Recovering/Resolving]
  - Prolactin-producing pituitary tumour [Not Recovered/Not Resolved]
  - Hyperprolactinaemia [Recovering/Resolving]
  - Psychotic disorder [Unknown]

NARRATIVE: CASE EVENT DATE: 20170413
